FAERS Safety Report 9598974 (Version 1)
Quarter: 2013Q4

REPORT INFORMATION
  Report Type: Spontaneous
  Country: US (occurrence: US)
  Receive Date: 20131004
  Receipt Date: 20131004
  Transmission Date: 20140711
  Serious: No
  Sender: FDA-Public Use
  Company Number: US-AMGEN-USASP2013027077

PATIENT
  Age: 42 Year
  Sex: Male

DRUGS (3)
  1. ENBREL [Suspect]
     Indication: PRODUCT USED FOR UNKNOWN INDICATION
     Dosage: 50 MG, QWK
     Route: 058
  2. CELEBREX [Concomitant]
     Dosage: 100 MG, UNK
  3. LISINOPRIL [Concomitant]
     Dosage: 2.5 MG, UNK

REACTIONS (3)
  - Injection site reaction [Unknown]
  - Injection site erythema [Unknown]
  - Injection site swelling [Unknown]
